FAERS Safety Report 8956226 (Version 2)
Quarter: 2013Q1

REPORT INFORMATION
  Report Type: Spontaneous
  Country: GB (occurrence: GB)
  Receive Date: 20121210
  Receipt Date: 20130130
  Transmission Date: 20140127
  Serious: Yes (Hospitalization, Other)
  Sender: FDA-Public Use
  Company Number: PHHY2012GB112026

PATIENT
  Age: 59 Year
  Sex: Female
  Weight: 52 kg

DRUGS (13)
  1. OMEPRAZOLE [Suspect]
     Indication: PROPHYLAXIS
     Dosage: 20 MG, QD
     Route: 048
  2. TELFAST [Interacting]
     Indication: PRURITUS
     Dosage: 120 MG, QD
     Route: 048
     Dates: end: 20121109
  3. TELFAST [Interacting]
     Dosage: 120 MG, QD
     Route: 048
     Dates: start: 20121107
  4. FOLIC ACID [Concomitant]
     Dosage: 5 MG, QD
     Route: 048
  5. ADCAL-D3 [Concomitant]
     Indication: MINERAL SUPPLEMENTATION
     Dosage: 750 MG (750 MG AND 5 MCG)
     Route: 048
  6. PREDNISOLONE [Concomitant]
     Dosage: 5 MG ONCE EVERY OTHER DAY
     Route: 048
  7. CROTAMITON [Concomitant]
     Route: 061
  8. CROTAMITON [Concomitant]
     Route: 061
  9. CANDESARTAN CILEXETIL [Concomitant]
     Indication: BLOOD PRESSURE
     Dosage: 32 MG, QD
     Route: 048
  10. DARBEPOETIN ALFA [Concomitant]
     Indication: MINERAL SUPPLEMENTATION
     Dosage: 40 UG, EVERY FORTNIGHT
  11. DIPROBASE [Concomitant]
     Route: 061
  12. DIPROBASE [Concomitant]
     Route: 061
  13. DOXAZOSIN MESILATE [Concomitant]
     Dosage: 2 MG, QD

REACTIONS (4)
  - Paraesthesia [Not Recovered/Not Resolved]
  - Pain [Not Recovered/Not Resolved]
  - Muscular weakness [Not Recovered/Not Resolved]
  - Drug interaction [Unknown]
